FAERS Safety Report 8492823-7 (Version None)
Quarter: 2012Q3

REPORT INFORMATION
  Report Type: 
  Country: None (occurrence: None)
  Receive Date: 20120706
  Receipt Date: 20120627
  Transmission Date: 20120928
  Serious: Yes (Other)
  Sender: FDA-Public Use
  Company Number: CA-JNJFOC-20120614174

PATIENT
  Sex: Female
  Weight: 65.32 kg

DRUGS (4)
  1. SYNTHROID [Concomitant]
     Route: 065
  2. REMICADE [Suspect]
     Indication: RHEUMATOID ARTHRITIS
     Route: 042
     Dates: start: 20061001
  3. FOLIC ACID [Concomitant]
     Route: 048
  4. ZOLOFT [Concomitant]
     Route: 065

REACTIONS (1)
  - DERMAL CYST [None]
